FAERS Safety Report 8145304-4 (Version None)
Quarter: 2012Q1

REPORT INFORMATION
  Report Type: 
  Country: None (occurrence: None)
  Receive Date: 20120103
  Receipt Date: 20110925
  Transmission Date: 20120608
  Serious: No
  Sender: FDA-Public Use
  Company Number: AE-2011-001807

PATIENT
  Age: 37 Year
  Sex: Female
  Weight: 49.8957 kg

DRUGS (3)
  1. PEGINTERFERON (PEGINTERFERON  ALFA-2A) [Concomitant]
  2. INCIVEK [Suspect]
     Dosage: (3 IN 1 IN D), ORAL
     Route: 048
     Dates: start: 20110923
  3. RIBAVIRIN [Concomitant]

REACTIONS (1)
  - VOMITING [None]
